FAERS Safety Report 7472901-1 (Version None)
Quarter: 2011Q1

REPORT INFORMATION
  Report Type: 
  Country: None (occurrence: None)
  Receive Date: 20110302
  Receipt Date: 20101130
  Transmission Date: 20110831
  Serious: Yes (Death, Hospitalization)
  Sender: FDA-Public Use
  Company Number: 163-21880-10101500

PATIENT
  Age: 61 Year
  Sex: Female

DRUGS (1)
  1. REVLIMID [Suspect]
     Indication: MULTIPLE MYELOMA
     Dosage: 25 MG, DAILY X 21 DAYS/OFF 7 DAYS, PO
     Route: 048
     Dates: start: 20100603, end: 20100101

REACTIONS (2)
  - CARDIAC AMYLOIDOSIS [None]
  - MULTIPLE MYELOMA [None]
